FAERS Safety Report 10428486 (Version 1)
Quarter: 2014Q3

REPORT INFORMATION
  Report Type: Spontaneous
  Country: None (occurrence: None)
  Receive Date: 20140829
  Receipt Date: 20140829
  Transmission Date: 20150326
  Serious: Yes (Other)
  Sender: FDA-Public Use
  Company Number: 2014COV00096

PATIENT
  Age: 57 Year
  Sex: Female
  Weight: 104.3 kg

DRUGS (2)
  1. PLAQUENIL [Suspect]
     Active Substance: HYDROXYCHLOROQUINE SULFATE
     Indication: RHEUMATOID ARTHRITIS
  2. HUMIRA [Suspect]
     Active Substance: ADALIMUMAB
     Indication: COLITIS ULCERATIVE
     Dates: start: 201106, end: 201404

REACTIONS (9)
  - Arthralgia [None]
  - Lichen planus [None]
  - Rash vesicular [None]
  - Squamous cell carcinoma of skin [None]
  - Rash erythematous [None]
  - Injection site pain [None]
  - Drug ineffective [None]
  - Rash [None]
  - Rash pruritic [None]

NARRATIVE: CASE EVENT DATE: 200106
